FAERS Safety Report 9373865 (Version 3)
Quarter: 2013Q3

REPORT INFORMATION
  Report Type: Spontaneous
  Country: SE (occurrence: SE)
  Receive Date: 20130628
  Receipt Date: 20130926
  Transmission Date: 20140515
  Serious: Yes (Other)
  Sender: FDA-Public Use
  Company Number: SE-ROCHE-1242273

PATIENT
  Age: 52 Year
  Sex: Female

DRUGS (12)
  1. CELLCEPT [Suspect]
     Indication: RENAL TRANSPLANT
     Route: 048
     Dates: start: 2002, end: 2004
  2. PROGRAF [Suspect]
     Indication: RENAL TRANSPLANT
     Route: 048
     Dates: start: 1998
  3. PREDNISOLON [Suspect]
     Indication: RENAL TRANSPLANT
     Route: 065
     Dates: start: 1998
  4. NOVORAPID FLEXPEN [Concomitant]
  5. SIMVASTATIN [Concomitant]
  6. MIMPARA [Concomitant]
  7. METOPROLOL SANDOZ (SWEDEN) [Concomitant]
  8. RENVELA [Concomitant]
  9. KALEORID [Concomitant]
  10. HIPREX [Concomitant]
  11. PLAVIX [Concomitant]
  12. FUROSEMIDE [Concomitant]

REACTIONS (2)
  - Hyperkeratosis [Unknown]
  - Skin cancer [Unknown]
